FAERS Safety Report 16228234 (Version 1)
Quarter: 2019Q2

REPORT INFORMATION
  Report Type: Spontaneous
  Country: US (occurrence: US)
  Receive Date: 20190422
  Receipt Date: 20190422
  Transmission Date: 20190711
  Serious: No
  Sender: FDA-Public Use
  Company Number: None

PATIENT
  Age: 51 Year
  Sex: Female
  Weight: 88.2 kg

DRUGS (6)
  1. ZOLOFT [Concomitant]
     Active Substance: SERTRALINE HYDROCHLORIDE
  2. LEXAPRO [Concomitant]
     Active Substance: ESCITALOPRAM OXALATE
  3. MAGNESIUM [Concomitant]
     Active Substance: MAGNESIUM
  4. TAMOXIFEN CITRATE 20MG [Suspect]
     Active Substance: TAMOXIFEN CITRATE
     Indication: CHEMOTHERAPY
     Dosage: ?          QUANTITY:1 TABLET(S);?
     Route: 048
     Dates: start: 20190304, end: 20190420
  5. TYLENOL [Concomitant]
     Active Substance: ACETAMINOPHEN
  6. MULTIVITAMIN [Concomitant]
     Active Substance: VITAMINS

REACTIONS (11)
  - Bone pain [None]
  - Myalgia [None]
  - Abdominal discomfort [None]
  - Depression [None]
  - Hypoacusis [None]
  - Tinnitus [None]
  - Speech disorder [None]
  - Headache [None]
  - Anxiety [None]
  - Balance disorder [None]
  - Pollakiuria [None]

NARRATIVE: CASE EVENT DATE: 20190420
